FAERS Safety Report 24250828 (Version 1)
Quarter: 2024Q3

REPORT INFORMATION
  Report Type: Spontaneous
  Country: US (occurrence: US)
  Receive Date: 20240826
  Receipt Date: 20240826
  Transmission Date: 20241017
  Serious: No
  Sender: MEDEXUS PHARMA
  Company Number: US-MEDEXUS PHARMA, INC.-2024MED00069

PATIENT
  Age: 50 Year
  Sex: Female
  Weight: 42.63 kg

DRUGS (3)
  1. RASUVO [Suspect]
     Active Substance: METHOTREXATE SODIUM
     Indication: Rheumatoid arthritis
     Dosage: INJECTED ON THE LEG, 1X/WEEK ON SUNDAYS
     Route: 058
  2. PLAQUENIL [Concomitant]
     Active Substance: HYDROXYCHLOROQUINE SULFATE
     Dosage: 200 MG
  3. PREDNISONE [Concomitant]
     Active Substance: PREDNISONE
     Dosage: 5 MG

REACTIONS (2)
  - Pain [Not Recovered/Not Resolved]
  - Product dose omission issue [Not Recovered/Not Resolved]

NARRATIVE: CASE EVENT DATE: 20240101
